FAERS Safety Report 9931804 (Version 1)
Quarter: 2014Q1

REPORT INFORMATION
  Report Type: Spontaneous
  Country: US (occurrence: None)
  Receive Date: 20140227
  Receipt Date: 20140227
  Transmission Date: 20141002
  Serious: Yes (Other)
  Sender: FDA-Public Use
  Company Number: None

PATIENT
  Age: 23 Year
  Sex: Female
  Weight: 65.77 kg

DRUGS (1)
  1. AMOXICILLIN 500MG TEVA [Suspect]
     Indication: TOOTH INFECTION
     Dosage: 30 PILLS FOUR TIMES DAILY TAKEN BY MOUTH
     Route: 048
     Dates: start: 20140224, end: 20140225

REACTIONS (5)
  - Dizziness [None]
  - Chest discomfort [None]
  - Dyspnoea [None]
  - Heart rate increased [None]
  - Swollen tongue [None]
